FAERS Safety Report 20689226 (Version 1)
Quarter: 2022Q2

REPORT INFORMATION
  Report Type: Spontaneous
  Country: JP (occurrence: JP)
  Receive Date: 20220408
  Receipt Date: 20220408
  Transmission Date: 20220721
  Serious: Yes (Other)
  Sender: FDA-Public Use
  Company Number: JP-GLAXOSMITHKLINE-JP2022JPN059858

PATIENT
  Age: 97 Year
  Sex: Female

DRUGS (1)
  1. VALTREX [Suspect]
     Active Substance: VALACYCLOVIR HYDROCHLORIDE
     Indication: Herpes zoster
     Dosage: 2000 MG/DAY

REACTIONS (11)
  - Toxic encephalopathy [Unknown]
  - Renal impairment [Unknown]
  - Altered state of consciousness [Recovering/Resolving]
  - Generalised tonic-clonic seizure [Unknown]
  - Metabolic encephalopathy [Unknown]
  - Feeling abnormal [Unknown]
  - Fall [Unknown]
  - Inflammation [Unknown]
  - Dyskinesia [Unknown]
  - Pyrexia [Unknown]
  - Urinary tract infection [Unknown]
